FAERS Safety Report 25689119 (Version 1)
Quarter: 2025Q3

REPORT INFORMATION
  Report Type: Report from Study
  Country: US (occurrence: US)
  Receive Date: 20250818
  Receipt Date: 20250818
  Transmission Date: 20251021
  Serious: Yes (Other)
  Sender: SUNOVION
  Company Number: US-SUMITOMO PHARMA SWITZERLAND GMBH-2024SPA004702

PATIENT
  Age: 89 Year
  Sex: Male

DRUGS (30)
  1. ORGOVYX [Suspect]
     Active Substance: RELUGOLIX
     Indication: Prostate cancer
     Dosage: 360 MG, SINGLE
     Route: 048
     Dates: start: 20241028, end: 20241028
  2. ORGOVYX [Suspect]
     Active Substance: RELUGOLIX
     Dosage: 120 MG, QD
     Route: 048
     Dates: start: 20241029
  3. CAMCEVI [Concomitant]
     Active Substance: LEUPROLIDE MESYLATE
     Route: 058
  4. CLOPIDOGREL BISULFATE [Concomitant]
     Active Substance: CLOPIDOGREL BISULFATE
  5. DILTIAZEM [Concomitant]
     Active Substance: DILTIAZEM
  6. EZETIMIBE [Concomitant]
     Active Substance: EZETIMIBE
  7. FARXIGA [Concomitant]
     Active Substance: DAPAGLIFLOZIN PROPANEDIOL
  8. FERROUS SULFATE [Concomitant]
     Active Substance: FERROUS SULFATE
  9. FLUOROURACIL [Concomitant]
     Active Substance: FLUOROURACIL
  10. FUROSEMIDE [Concomitant]
     Active Substance: FUROSEMIDE
  11. GEMTESA [Concomitant]
     Active Substance: VIBEGRON
     Indication: Hypertonic bladder
  12. LUPRON DEPOT [Concomitant]
     Active Substance: LEUPROLIDE ACETATE
  13. METFORMIN HYDROCHLORIDE [Concomitant]
     Active Substance: METFORMIN HYDROCHLORIDE
  14. NITROGLYCERIN [Concomitant]
     Active Substance: NITROGLYCERIN
     Route: 060
  15. PANTOPRAZOLE SODIUM [Concomitant]
     Active Substance: PANTOPRAZOLE SODIUM
  16. PREGABALIN [Concomitant]
     Active Substance: PREGABALIN
  17. SILDENAFIL CITRATE [Concomitant]
     Active Substance: SILDENAFIL CITRATE
  18. SIMVASTATIN [Concomitant]
     Active Substance: SIMVASTATIN
  19. TRAMADOL HCL [Concomitant]
     Active Substance: TRAMADOL HYDROCHLORIDE
  20. XIIDRA [Concomitant]
     Active Substance: LIFITEGRAST
     Route: 047
  21. ZINC [Concomitant]
     Active Substance: ZINC
  22. VITAMIN D3 [Concomitant]
     Active Substance: CHOLECALCIFEROL
  23. VITAMIN B COMPLEX [Concomitant]
     Active Substance: CYANOCOBALAMIN\DEXPANTHENOL\NIACINAMIDE\PYRIDOXINE HYDROCHLORIDE\RIBOFLAVIN 5^-PHOSPHATE SODIUM\THIA
  24. POTASSIUM CHLORIDE [Concomitant]
     Active Substance: POTASSIUM CHLORIDE
  25. EZETIMIBE\SIMVASTATIN [Concomitant]
     Active Substance: EZETIMIBE\SIMVASTATIN
  26. DEXTROSE [Concomitant]
     Active Substance: DEXTROSE MONOHYDRATE
  27. ROSUVASTATIN [Concomitant]
     Active Substance: ROSUVASTATIN
  28. COLACE [Concomitant]
     Active Substance: DOCUSATE SODIUM
  29. CARVEDILOL [Concomitant]
     Active Substance: CARVEDILOL
  30. ENTRESTO [Concomitant]
     Active Substance: SACUBITRIL\VALSARTAN

REACTIONS (6)
  - Cardiac failure congestive [Unknown]
  - Oedema [Unknown]
  - Hot flush [Unknown]
  - Arthralgia [Unknown]
  - Pain in extremity [Unknown]
  - Constipation [Unknown]
